FAERS Safety Report 24780661 (Version 1)
Quarter: 2024Q4

REPORT INFORMATION
  Report Type: Spontaneous
  Country: US (occurrence: US)
  Receive Date: 20241227
  Receipt Date: 20241227
  Transmission Date: 20250115
  Serious: Yes (Hospitalization)
  Sender: ABBVIE
  Company Number: US-ABBVIE-6064915

PATIENT
  Sex: Male

DRUGS (6)
  1. VENETOCLAX [Suspect]
     Active Substance: VENETOCLAX
     Indication: Chronic lymphocytic leukaemia
     Route: 048
  2. VENETOCLAX [Suspect]
     Active Substance: VENETOCLAX
     Indication: Chronic lymphocytic leukaemia
     Route: 048
  3. OBINUTUZUMAB [Suspect]
     Active Substance: OBINUTUZUMAB
     Indication: Product used for unknown indication
     Route: 065
     Dates: start: 20230619
  4. ALLOPURINOL [Concomitant]
     Active Substance: ALLOPURINOL
     Indication: Product used for unknown indication
  5. OCTAGAM IMMUNE GLOBULIN (HUMAN) [Suspect]
     Active Substance: HUMAN IMMUNOGLOBULIN G
     Indication: Chronic lymphocytic leukaemia
     Dosage: 5%
     Route: 065
  6. EVUSHELD [Concomitant]
     Active Substance: CILGAVIMAB\TIXAGEVIMAB
     Indication: Product used for unknown indication

REACTIONS (17)
  - COVID-19 [Unknown]
  - Vomiting [Unknown]
  - Flushing [Unknown]
  - Pneumonia [Unknown]
  - Rhinovirus infection [Unknown]
  - Rash [Recovered/Resolved]
  - Nausea [Unknown]
  - Diarrhoea [Unknown]
  - Pruritus [Recovered/Resolved]
  - Gout [Unknown]
  - Epididymitis [Unknown]
  - Lymphocyte count increased [Unknown]
  - Night sweats [Unknown]
  - Trisomy 12 [Unknown]
  - Pain [Unknown]
  - Hepatosplenomegaly [Unknown]
  - Lymphadenopathy [Unknown]
